FAERS Safety Report 17973980 (Version 1)
Quarter: 2020Q3

REPORT INFORMATION
  Report Type: Spontaneous
  Country: US (occurrence: US)
  Receive Date: 20200701
  Receipt Date: 20200701
  Transmission Date: 20201103
  Serious: Yes (Other)
  Sender: FDA-Public Use
  Company Number: None

PATIENT
  Age: 59 Year
  Sex: Female
  Weight: 106.59 kg

DRUGS (8)
  1. DEPAKOTE [Concomitant]
     Active Substance: DIVALPROEX SODIUM
  2. VITAMIN D3 [Concomitant]
     Active Substance: CHOLECALCIFEROL
  3. WHEELCHAIR [Concomitant]
     Active Substance: DEVICE
  4. SAPHRIS [Suspect]
     Active Substance: ASENAPINE MALEATE
     Indication: PSYCHOTIC DISORDER
     Dosage: ?          QUANTITY:1 DF DOSAGE FORM;OTHER FREQUENCY:1 5MG AM 1 10MG PM;OTHER ROUTE:ORAL/SUBLINGUAL?
     Dates: start: 201406
  5. SAPHRIS [Suspect]
     Active Substance: ASENAPINE MALEATE
     Indication: BIPOLAR DISORDER
     Dosage: ?          QUANTITY:1 DF DOSAGE FORM;OTHER FREQUENCY:1 5MG AM 1 10MG PM;OTHER ROUTE:ORAL/SUBLINGUAL?
     Dates: start: 201406
  6. WALKER [Concomitant]
  7. CLONOPINE [Concomitant]
  8. VITAMIN C [Concomitant]
     Active Substance: ASCORBIC ACID

REACTIONS (4)
  - Balance disorder [None]
  - Oral discomfort [None]
  - Libido decreased [None]
  - Taste disorder [None]

NARRATIVE: CASE EVENT DATE: 201406
